FAERS Safety Report 7455993-5 (Version None)
Quarter: 2011Q2

REPORT INFORMATION
  Report Type: 
  Country: None (occurrence: None)
  Receive Date: 20110503
  Receipt Date: 20110426
  Transmission Date: 20111010
  Serious: Yes (Hospitalization)
  Sender: FDA-Public Use
  Company Number: DE-MERCK-1103DEU00132

PATIENT
  Age: 60 Year
  Sex: Female
  Weight: 85 kg

DRUGS (3)
  1. BISOPROLOL [Concomitant]
     Indication: HYPERTENSION
     Route: 048
  2. JANUVIA [Suspect]
     Indication: TYPE 2 DIABETES MELLITUS
     Route: 048
     Dates: start: 20100101, end: 20110201
  3. ZOCOR [Suspect]
     Indication: HYPERLIPIDAEMIA
     Route: 048
     Dates: start: 20100701, end: 20101201

REACTIONS (16)
  - RENAL CYST [None]
  - SPLEEN SCAN ABNORMAL [None]
  - ABNORMAL SENSATION IN EYE [None]
  - VISUAL IMPAIRMENT [None]
  - RENAL FAILURE CHRONIC [None]
  - BLOOD CREATINE PHOSPHOKINASE INCREASED [None]
  - ACCESSORY SPLEEN [None]
  - COLONIC POLYP [None]
  - VISION BLURRED [None]
  - SPLENOMEGALY [None]
  - SINUS DISORDER [None]
  - GASTRITIS [None]
  - DIPLOPIA [None]
  - MYOSITIS [None]
  - UTERINE LEIOMYOMA [None]
  - RECTAL POLYP [None]
